FAERS Safety Report 10636095 (Version 3)
Quarter: 2015Q1

REPORT INFORMATION
  Report Type: Spontaneous
  Country: JP (occurrence: JP)
  Receive Date: 20141205
  Receipt Date: 20150212
  Transmission Date: 20150720
  Serious: Yes (Hospitalization, Other)
  Sender: FDA-Public Use
  Company Number: JP-ASTRAZENECA-2014SE93624

PATIENT
  Age: 23313 Day
  Sex: Male
  Weight: 50 kg

DRUGS (6)
  1. DAIKENCHUTO [Concomitant]
     Active Substance: HERBALS
     Route: 048
     Dates: start: 20140929, end: 20141009
  2. MAGMITT [Concomitant]
     Active Substance: MAGNESIUM OXIDE
     Route: 048
     Dates: start: 20140509, end: 20141016
  3. HORIZON [Concomitant]
     Active Substance: DIAZEPAM
     Route: 048
     Dates: start: 20131205, end: 20141016
  4. CONTOMIN [Concomitant]
     Active Substance: CHLORPROMAZINE
     Route: 048
     Dates: start: 20140905, end: 20141016
  5. TAKEPRON [Concomitant]
     Active Substance: LANSOPRAZOLE
     Route: 048
     Dates: start: 20140205, end: 20141009
  6. SEROQUEL [Suspect]
     Active Substance: QUETIAPINE FUMARATE
     Indication: SCHIZOPHRENIA
     Route: 048
     Dates: start: 20140117, end: 20141020

REACTIONS (5)
  - Hepatic function abnormal [Recovering/Resolving]
  - Blood alkaline phosphatase increased [Unknown]
  - Alanine aminotransferase increased [Unknown]
  - Lymphocyte stimulation test positive [Unknown]
  - Hepatic cyst [Unknown]

NARRATIVE: CASE EVENT DATE: 20141007
